FAERS Safety Report 25432919 (Version 1)
Quarter: 2025Q2

REPORT INFORMATION
  Report Type: Spontaneous
  Country: US (occurrence: None)
  Receive Date: 20250613
  Receipt Date: 20250613
  Transmission Date: 20250717
  Serious: Yes (Hospitalization)
  Sender: MDD OPERATIONS
  Company Number: US-MDD US Operations-MDD202410-003799

PATIENT
  Age: 56 Year
  Sex: Male

DRUGS (3)
  1. APOKYN [Suspect]
     Active Substance: APOMORPHINE HYDROCHLORIDE
     Indication: Parkinson^s disease
     Dates: start: 2024
  2. APOKYN [Suspect]
     Active Substance: APOMORPHINE HYDROCHLORIDE
  3. CARBIDOPA\LEVODOPA [Concomitant]
     Active Substance: CARBIDOPA\LEVODOPA

REACTIONS (8)
  - Constipation [Recovering/Resolving]
  - Dysuria [Not Recovered/Not Resolved]
  - Musculoskeletal stiffness [Unknown]
  - Freezing phenomenon [Unknown]
  - Balance disorder [Unknown]
  - Hallucination [Unknown]
  - Anxiety [Unknown]
  - Inappropriate schedule of product administration [Unknown]
